FAERS Safety Report 21584689 (Version 1)
Quarter: 2022Q4

REPORT INFORMATION
  Report Type: Spontaneous
  Country: US (occurrence: US)
  Receive Date: 20221111
  Receipt Date: 20221111
  Transmission Date: 20230112
  Serious: No
  Sender: FDA-Public Use
  Company Number: US-JNJFOC-20221112315

PATIENT
  Age: 73 Year
  Sex: Female
  Weight: 78.996 kg

DRUGS (2)
  1. REMICADE [Suspect]
     Active Substance: INFLIXIMAB
     Indication: Rheumatoid arthritis
     Route: 041
  2. REMICADE [Suspect]
     Active Substance: INFLIXIMAB
     Indication: Osteoarthritis
     Route: 041
     Dates: start: 20220404

REACTIONS (2)
  - Osteoarthritis [Not Recovered/Not Resolved]
  - Skin infection [Unknown]
